FAERS Safety Report 20315700 (Version 1)
Quarter: 2022Q1

REPORT INFORMATION
  Report Type: Other
  Country: US (occurrence: None)
  Receive Date: 20220110
  Receipt Date: 20220110
  Transmission Date: 20220423
  Serious: No
  Sender: FDA-Public Use
  Company Number: US-ROCHE-2846881

PATIENT
  Age: 70 Year
  Sex: Male

DRUGS (5)
  1. RITUXIMAB [Suspect]
     Active Substance: RITUXIMAB
     Indication: Ocular pemphigoid
     Route: 065
  2. MYCOPHENOLATE MOFETIL [Suspect]
     Active Substance: MYCOPHENOLATE MOFETIL
     Indication: Ocular pemphigoid
     Route: 048
  3. METHOTREXATE [Concomitant]
     Active Substance: METHOTREXATE
  4. CYCLOPHOSPHAMIDE [Concomitant]
     Active Substance: CYCLOPHOSPHAMIDE
     Dosage: LOW DOSE
     Route: 048
  5. TOFACITINIB [Concomitant]
     Active Substance: TOFACITINIB
     Indication: Ocular pemphigoid
     Route: 048

REACTIONS (2)
  - Drug ineffective [Unknown]
  - No adverse event [Unknown]
